FAERS Safety Report 10087517 (Version 2)
Quarter: 2014Q2

REPORT INFORMATION
  Report Type: Spontaneous
  Country: US (occurrence: US)
  Receive Date: 20140418
  Receipt Date: 20140418
  Transmission Date: 20141212
  Serious: No
  Sender: FDA-Public Use
  Company Number: US-PURDUE-USA-2013-0107694

PATIENT
  Age: 62 Year
  Sex: Female

DRUGS (1)
  1. OXYCONTIN (NDA 22-272) [Suspect]
     Indication: PANCREATIC CARCINOMA
     Dosage: 40 MG, UNK
     Route: 048
     Dates: start: 20131011, end: 20131011

REACTIONS (11)
  - Gait disturbance [Recovered/Resolved]
  - Palpitations [Recovered/Resolved]
  - Hypersensitivity [Recovered/Resolved]
  - Dizziness [Not Recovered/Not Resolved]
  - Headache [Recovered/Resolved]
  - Feeling abnormal [Recovered/Resolved]
  - Unevaluable event [Unknown]
  - Dyspnoea [Unknown]
  - Vertigo [Unknown]
  - Chest discomfort [Unknown]
  - Pruritus generalised [Unknown]
